FAERS Safety Report 23276007 (Version 7)
Quarter: 2024Q2

REPORT INFORMATION
  Report Type: Spontaneous
  Country: JP (occurrence: JP)
  Receive Date: 20231208
  Receipt Date: 20240522
  Transmission Date: 20240716
  Serious: Yes (Other)
  Sender: FDA-Public Use
  Company Number: JP-AMGEN-JPNSP2023216848

PATIENT
  Age: 75 Year
  Sex: Male

DRUGS (4)
  1. BLINCYTO [Suspect]
     Active Substance: BLINATUMOMAB
     Indication: B precursor type acute leukaemia
     Dosage: 9 MICROGRAM, CENTRAL VENOUS DRIP INFUSION
     Route: 042
     Dates: start: 20231121, end: 20231128
  2. BLINCYTO [Suspect]
     Active Substance: BLINATUMOMAB
     Dosage: 28 MICROGRAM, QD (CENTRAL VENOUS DRIP INFUSION)
     Route: 042
     Dates: start: 20231128, end: 20231203
  3. BLINCYTO [Suspect]
     Active Substance: BLINATUMOMAB
     Dosage: 9 MICROGRAM, CENTRAL VENOUS, DRIP INFUSION
     Route: 042
  4. VANCOMYCIN [Suspect]
     Active Substance: VANCOMYCIN
     Indication: Product used for unknown indication
     Dosage: UNK
     Route: 065
     Dates: start: 20231126

REACTIONS (6)
  - Venoocclusive liver disease [Unknown]
  - Acute kidney injury [Recovered/Resolved]
  - Transient aphasia [Recovered/Resolved]
  - Logorrhoea [Recovered/Resolved]
  - Device related infection [Recovered/Resolved]
  - Infection [Recovered/Resolved]

NARRATIVE: CASE EVENT DATE: 20231126
